FAERS Safety Report 9236474 (Version 1)
Quarter: 2013Q2

REPORT INFORMATION
  Report Type: Spontaneous
  Country: DE (occurrence: DE)
  Receive Date: 20130417
  Receipt Date: 20130417
  Transmission Date: 20140414
  Serious: Yes (Other)
  Sender: FDA-Public Use
  Company Number: DE-ELI_LILLY_AND_COMPANY-DE201304001727

PATIENT
  Age: 17 Year
  Sex: Female

DRUGS (3)
  1. ZYPREXA [Suspect]
     Indication: DECREASED APPETITE
     Dosage: 5 MG, UNKNOWN
     Route: 048
     Dates: start: 2011
  2. CLOZAPIN [Concomitant]
     Dosage: 1 DF, UNKNOWN
  3. CIPRALEX [Concomitant]
     Dosage: 1 DF, UNKNOWN

REACTIONS (3)
  - Leukopenia [Not Recovered/Not Resolved]
  - Neutropenia [Not Recovered/Not Resolved]
  - Off label use [Unknown]
